FAERS Safety Report 11176770 (Version 1)
Quarter: 2015Q2

REPORT INFORMATION
  Report Type: Spontaneous
  Country: US (occurrence: None)
  Receive Date: 20150608
  Receipt Date: 20150608
  Transmission Date: 20150821
  Serious: Yes (Hospitalization)
  Sender: FDA-Public Use
  Company Number: 9039997-2015-00066

PATIENT
  Age: 63 Year
  Sex: Male

DRUGS (2)
  1. LEVULAN KERASTICK [Suspect]
     Active Substance: AMINOLEVULINIC ACID HYDROCHLORIDE
     Dosage: 20% TOPICAL
     Route: 061
     Dates: start: 20150521
  2. BIAFINE [Concomitant]
     Active Substance: TROLAMINE

REACTIONS (3)
  - Procedural pain [None]
  - Amnesia [None]
  - Disorientation [None]

NARRATIVE: CASE EVENT DATE: 20150521
